FAERS Safety Report 7501650-6 (Version None)
Quarter: 2011Q2

REPORT INFORMATION
  Report Type: 
  Country: None (occurrence: None)
  Receive Date: 20110524
  Receipt Date: 20110512
  Transmission Date: 20111010
  Serious: Yes (Other)
  Sender: FDA-Public Use
  Company Number: US-ELI_LILLY_AND_COMPANY-US201105004549

PATIENT
  Sex: Female

DRUGS (2)
  1. CYMBALTA [Suspect]
     Dosage: 60 MG, UNKNOWN
  2. ZYPREXA [Suspect]
     Indication: SLEEP DISORDER
     Dosage: 2.5 MG, UNKNOWN

REACTIONS (3)
  - OFF LABEL USE [None]
  - HEPATITIS C [None]
  - INSOMNIA [None]
